FAERS Safety Report 4481060-9 (Version None)
Quarter: 2004Q4

REPORT INFORMATION
  Report Type: 
  Country: None (occurrence: None)
  Receive Date: 20041021
  Receipt Date: 20040916
  Transmission Date: 20050328
  Serious: Yes (Hospitalization)
  Sender: FDA-Public Use
  Company Number: BR-ROCHE-380993

PATIENT
  Age: 6 Year
  Sex: Male

DRUGS (3)
  1. RIVOTRIL [Suspect]
     Route: 048
     Dates: start: 20040826, end: 20040916
  2. NEULEPTIL [Concomitant]
     Route: 048
  3. NEOZINE [Concomitant]
     Route: 048

REACTIONS (12)
  - ABNORMAL BEHAVIOUR [None]
  - AGGRESSION [None]
  - COORDINATION ABNORMAL [None]
  - DECREASED APPETITE [None]
  - FALL [None]
  - HEADACHE [None]
  - INSOMNIA [None]
  - LIP DISORDER [None]
  - SYNCOPE [None]
  - TONGUE DISORDER [None]
  - TREMOR [None]
  - URINARY RETENTION [None]
